FAERS Safety Report 9563881 (Version 1)
Quarter: 2013Q3

REPORT INFORMATION
  Report Type: Spontaneous
  Country: US (occurrence: US)
  Receive Date: 20130927
  Receipt Date: 20130927
  Transmission Date: 20140515
  Serious: Yes (Other)
  Sender: FDA-Public Use
  Company Number: US-ROCHE-1282134

PATIENT
  Age: 52 Year
  Sex: Male

DRUGS (4)
  1. XOLAIR [Suspect]
     Indication: ASTHMA
     Route: 058
     Dates: start: 20130326
  2. XOLAIR [Suspect]
     Route: 058
     Dates: start: 20130412
  3. XOLAIR [Suspect]
     Route: 065
     Dates: start: 20130603
  4. XOLAIR [Suspect]
     Route: 065
     Dates: start: 201309

REACTIONS (3)
  - Blood pressure increased [Unknown]
  - Heart rate increased [Unknown]
  - Rash [Recovered/Resolved]
